FAERS Safety Report 5826507-8 (Version None)
Quarter: 2008Q3

REPORT INFORMATION
  Report Type: 
  Country: None (occurrence: None)
  Receive Date: 20080723
  Receipt Date: 20080709
  Transmission Date: 20090109
  Serious: Yes (Hospitalization, Other)
  Sender: FDA-Public Use
  Company Number: ALA_00114_2008

PATIENT

DRUGS (15)
  1. METOCLOPRAMIDE [Suspect]
     Indication: DRUG USE FOR UNKNOWN INDICATION
     Dosage: DF
     Dates: end: 20060101
  2. ENBREL [Suspect]
     Indication: PSORIASIS
     Dosage: 2 DF 1W/WEEK; TRANSPLACENTAL
     Route: 064
     Dates: start: 20050808, end: 20050906
  3. ENBREL [Suspect]
     Indication: RHEUMATOID ARTHRITIS
     Dosage: 2 DF 1W/WEEK; TRANSPLACENTAL
     Route: 064
     Dates: start: 20050808, end: 20050906
  4. ASCORBIC ACID [Concomitant]
  5. ANTIBIOTICS [Concomitant]
  6. CAFFEINE [Concomitant]
  7. FOLIC ACID [Concomitant]
  8. IRON [Concomitant]
  9. VITAMIN TAB [Concomitant]
  10. DIPHENHYDRAMINE HYDROCHLORIDE [Concomitant]
  11. ANESTHETICS NOS [Concomitant]
  12. ACETAMINOPHEN [Concomitant]
  13. TUMS [Concomitant]
  14. UNSPECIFIED MEDICATION [Concomitant]
  15. UNSPECIFIED DIET PILL [Concomitant]

REACTIONS (4)
  - CONVULSION NEONATAL [None]
  - GASTROOESOPHAGEAL REFLUX DISEASE [None]
  - MATERNAL DRUGS AFFECTING FOETUS [None]
  - RESPIRATORY DISORDER NEONATAL [None]
